FAERS Safety Report 18095804 (Version 1)
Quarter: 2020Q3

REPORT INFORMATION
  Report Type: Spontaneous
  Country: US (occurrence: US)
  Receive Date: 20200730
  Receipt Date: 20200730
  Transmission Date: 20201103
  Serious: No
  Sender: FDA-Public Use
  Company Number: US-009507513-2007USA008765

PATIENT
  Sex: Female

DRUGS (7)
  1. FLONASE [Concomitant]
     Active Substance: FLUTICASONE PROPIONATE
  2. ALBUTEROL SULFATE. [Concomitant]
     Active Substance: ALBUTEROL SULFATE
  3. ATROVENT HFA [Concomitant]
     Active Substance: IPRATROPIUM BROMIDE
  4. SINGULAIR [Suspect]
     Active Substance: MONTELUKAST SODIUM
     Indication: ASTHMA
     Dosage: 10 MILLIGRAM, BY MOUTH
     Route: 048
     Dates: start: 2004
  5. SINGULAIR [Suspect]
     Active Substance: MONTELUKAST SODIUM
     Dosage: 10 MILLIGRAM, BID
     Route: 048
  6. CLARITIN [Concomitant]
     Active Substance: LORATADINE
  7. DULERA [Suspect]
     Active Substance: FORMOTEROL FUMARATE DIHYDRATE\MOMETASONE FUROATE
     Indication: ASTHMA
     Dosage: 2 INHALATIONS/TWICE DAY

REACTIONS (4)
  - Infection [Not Recovered/Not Resolved]
  - Drug ineffective [Unknown]
  - Asthma [Not Recovered/Not Resolved]
  - Product prescribing issue [Unknown]

NARRATIVE: CASE EVENT DATE: 2020
